FAERS Safety Report 6572732-0 (Version None)
Quarter: 2010Q1

REPORT INFORMATION
  Report Type: 
  Country: None (occurrence: None)
  Receive Date: 20100205
  Receipt Date: 20100118
  Transmission Date: 20100710
  Serious: Yes (Other)
  Sender: FDA-Public Use
  Company Number: JP-JNJFOC-20100202587

PATIENT
  Age: 74 Year
  Sex: Female

DRUGS (1)
  1. ITRACONAZOLE [Suspect]
     Indication: TINEA PEDIS
     Route: 065

REACTIONS (6)
  - ACQUIRED HAEMOPHILIA [None]
  - ACTIVATED PARTIAL THROMBOPLASTIN TIME PROLONGED [None]
  - ANAEMIA [None]
  - FACTOR VIII DEFICIENCY [None]
  - MUSCLE HAEMORRHAGE [None]
  - OESOPHAGEAL ULCER [None]
